FAERS Safety Report 4982848-8 (Version None)
Quarter: 2006Q2

REPORT INFORMATION
  Report Type: 
  Country: None (occurrence: None)
  Receive Date: 20060425
  Receipt Date: 20060106
  Transmission Date: 20061013
  Serious: Yes (Hospitalization)
  Sender: FDA-Public Use
  Company Number: US-MERCK-0601USA01002

PATIENT
  Age: 48 Year
  Sex: Female
  Weight: 121 kg

DRUGS (6)
  1. VIOXX [Suspect]
     Indication: MYALGIA
     Route: 048
     Dates: start: 20020101, end: 20041201
  2. VIOXX [Suspect]
     Indication: INFLAMMATION
     Route: 048
     Dates: start: 20020101, end: 20041201
  3. BEXTRA [Concomitant]
     Route: 065
  4. MOTRIN [Concomitant]
     Route: 065
  5. CELEBREX [Concomitant]
     Route: 065
  6. LASIX [Concomitant]
     Indication: OEDEMA PERIPHERAL
     Route: 065
     Dates: start: 20000101, end: 20060201

REACTIONS (8)
  - CARDIAC FAILURE CONGESTIVE [None]
  - DEPRESSION [None]
  - GENERALISED ANXIETY DISORDER [None]
  - LIVER DISORDER [None]
  - OVERDOSE [None]
  - STRESS [None]
  - SUICIDAL IDEATION [None]
  - THROMBOSIS [None]
